FAERS Safety Report 7437143-4 (Version None)
Quarter: 2011Q2

REPORT INFORMATION
  Report Type: 
  Country: None (occurrence: None)
  Receive Date: 20110426
  Receipt Date: 20110419
  Transmission Date: 20111010
  Serious: Yes (Hospitalization)
  Sender: FDA-Public Use
  Company Number: IR-AMGEN-IRNSP2011020921

PATIENT
  Age: 24 Year
  Sex: Female

DRUGS (1)
  1. ENBREL [Suspect]
     Indication: PSORIATIC ARTHROPATHY
     Dosage: 50 MG, WEEKLY
     Route: 058
     Dates: start: 20110101, end: 20110314

REACTIONS (3)
  - ARTHRALGIA [None]
  - JOINT SWELLING [None]
  - RED BLOOD CELL SEDIMENTATION RATE INCREASED [None]
